FAERS Safety Report 8878886 (Version 4)
Quarter: 2013Q1

REPORT INFORMATION
  Report Type: Spontaneous
  Country: JP (occurrence: JP)
  Receive Date: 20121026
  Receipt Date: 20130206
  Transmission Date: 20140127
  Serious: Yes (Hospitalization)
  Sender: FDA-Public Use
  Company Number: JP-ROCHE-1148665

PATIENT
  Age: 56 None
  Sex: Female
  Weight: 44 kg

DRUGS (6)
  1. HERCEPTIN [Suspect]
     Indication: BREAST CANCER
     Route: 041
     Dates: start: 20120528, end: 20120528
  2. HERCEPTIN [Suspect]
     Indication: BREAST CANCER
     Route: 041
     Dates: start: 20120604, end: 20120827
  3. HERCEPTIN [Suspect]
     Indication: BREAST CANCER
     Route: 041
     Dates: start: 20120919
  4. TAXOL [Concomitant]
     Indication: BREAST CANCER
     Dosage: DOSAGE 100 MG -118 MG
     Route: 041
     Dates: start: 20120529, end: 20120827
  5. MEVALOTIN [Concomitant]
     Indication: HYPERLIPIDAEMIA
     Route: 048
     Dates: start: 20021202
  6. SODIUM BICARBONATE [Concomitant]
     Indication: TUBULOINTERSTITIAL NEPHRITIS
     Route: 048
     Dates: start: 20090602

REACTIONS (2)
  - Hepatic function abnormal [Recovering/Resolving]
  - Insomnia [Not Recovered/Not Resolved]
